FAERS Safety Report 4696319-X (Version None)
Quarter: 2005Q2

REPORT INFORMATION
  Report Type: 
  Country: None (occurrence: None)
  Receive Date: 20050620
  Receipt Date: 20050607
  Transmission Date: 20051028
  Serious: Yes (Other)
  Sender: FDA-Public Use
  Company Number: 2005087415

PATIENT
  Sex: Female
  Weight: 72.5755 kg

DRUGS (5)
  1. CELEBREX [Suspect]
     Indication: BACK DISORDER
     Dosage: ORAL
     Route: 048
     Dates: start: 20020101
  2. LIPITOR [Concomitant]
  3. CALCIUM GLUCONATE [Concomitant]
  4. ASPIRIN [Concomitant]
  5. ICAPS (MINERALS NOS, VITAMINS NOS) [Concomitant]

REACTIONS (7)
  - DYSPNOEA [None]
  - ERYTHEMA [None]
  - JOINT SWELLING [None]
  - PRURITUS [None]
  - THERAPY NON-RESPONDER [None]
  - URTICARIA [None]
  - VISUAL DISTURBANCE [None]
